FAERS Safety Report 4295697-3 (Version None)
Quarter: 2004Q1

REPORT INFORMATION
  Report Type: 
  Country: None (occurrence: None)
  Receive Date: 20040216
  Receipt Date: 20040105
  Transmission Date: 20041129
  Serious: Yes (Other)
  Sender: FDA-Public Use
  Company Number: US-GLAXOSMITHKLINE-A0491314A

PATIENT
  Age: 44 Year
  Sex: Female

DRUGS (5)
  1. WELLBUTRIN [Suspect]
     Indication: DEPRESSION
     Dosage: 150MG PER DAY
     Route: 048
  2. WELLBUTRIN [Suspect]
     Dosage: 75MG SEE DOSAGE TEXT
     Route: 048
     Dates: start: 20040107
  3. PAXIL [Suspect]
  4. COMPAZINE [Concomitant]
  5. LORAZEPAM [Concomitant]

REACTIONS (14)
  - APHASIA [None]
  - DISORIENTATION [None]
  - FEELING ABNORMAL [None]
  - HEADACHE [None]
  - INSOMNIA [None]
  - LIBIDO DECREASED [None]
  - MEDICATION ERROR [None]
  - MOOD ALTERED [None]
  - MUSCLE TIGHTNESS [None]
  - OBSESSIVE-COMPULSIVE DISORDER [None]
  - SALIVARY HYPERSECRETION [None]
  - TONGUE DISORDER [None]
  - VISUAL ACUITY REDUCED [None]
  - WEIGHT INCREASED [None]
